FAERS Safety Report 5355359-8 (Version None)
Quarter: 2007Q2

REPORT INFORMATION
  Report Type: 
  Country: None (occurrence: None)
  Receive Date: 20070601
  Receipt Date: 20070222
  Transmission Date: 20071010
  Serious: Yes (Other)
  Sender: FDA-Public Use
  Company Number: 34694

PATIENT
  Age: 60 Year
  Sex: Female
  Weight: 160 kg

DRUGS (3)
  1. THIOTEPA [Suspect]
     Indication: BLADDER CANCER
     Dosage: 30 MG/60 ML STERILE WATER/INTR
     Dates: start: 20070115
  2. THIOTEPA [Suspect]
     Indication: BLADDER CANCER
     Dosage: 30 MG/60 ML STERILE WATER/INTR
     Dates: start: 20070129
  3. THIOTEPA [Suspect]
     Indication: BLADDER CANCER
     Dosage: 30 MG/60 ML STERILE WATER/INTR
     Dates: start: 20070206

REACTIONS (2)
  - ABDOMINAL PAIN [None]
  - BURNING SENSATION [None]
